FAERS Safety Report 24060654 (Version 1)
Quarter: 2024Q3

REPORT INFORMATION
  Report Type: Spontaneous
  Country: CA (occurrence: CA)
  Receive Date: 20240708
  Receipt Date: 20240708
  Transmission Date: 20241017
  Serious: Yes (Hospitalization)
  Sender: TEVA
  Company Number: CA-TEVA-VS-3215069

PATIENT
  Age: 39 Year
  Sex: Female
  Weight: 83 kg

DRUGS (9)
  1. PREDNISONE [Suspect]
     Active Substance: PREDNISONE
     Indication: Colitis
     Route: 048
  2. PREDNISONE [Suspect]
     Active Substance: PREDNISONE
     Indication: Colitis
     Route: 048
  3. HERBALS\WITHANIA SOMNIFERA ROOT [Concomitant]
     Active Substance: HERBALS\WITHANIA SOMNIFERA ROOT
     Indication: Product used for unknown indication
     Route: 065
  4. MAGNESIUM CHLORIDE [Concomitant]
     Active Substance: MAGNESIUM CHLORIDE
     Indication: Product used for unknown indication
     Dosage: DESCRIPTION: MAGNESIUM CHLORIDE SOLUTION 1000MG/5ML
     Route: 065
  5. OMEGA 3 [Concomitant]
     Active Substance: CAPSAICIN
     Indication: Product used for unknown indication
     Route: 065
  6. VITAMINS [Concomitant]
     Active Substance: VITAMINS
     Indication: Product used for unknown indication
     Route: 065
  7. Rhodiola root extract [Concomitant]
     Indication: Product used for unknown indication
     Route: 065
  8. BERBERINE HYDROCHLORIDE BORIC ACID HYDRASTINE HYDROCHLORIDE [Concomitant]
     Indication: Product used for unknown indication
     Route: 065
  9. CHOLECALCIFEROL [Concomitant]
     Active Substance: CHOLECALCIFEROL
     Indication: Product used for unknown indication
     Route: 065

REACTIONS (5)
  - Affective disorder [Recovering/Resolving]
  - Condition aggravated [Recovering/Resolving]
  - Hallucination, tactile [Recovering/Resolving]
  - Homicidal ideation [Recovering/Resolving]
  - Suicidal ideation [Recovering/Resolving]
